FAERS Safety Report 6666430-2 (Version None)
Quarter: 2010Q1

REPORT INFORMATION
  Report Type: 
  Country: None (occurrence: None)
  Receive Date: 20100331
  Receipt Date: 20100325
  Transmission Date: 20100710
  Serious: Yes (Hospitalization)
  Sender: FDA-Public Use
  Company Number: ALL1-2010-01674

PATIENT
  Age: 49 Year
  Sex: Female

DRUGS (1)
  1. FOSRENOL [Suspect]
     Indication: HYPERPHOSPHATAEMIA
     Dosage: 1000 MG, TABLET WITH MEALS, ORAL
     Route: 048
     Dates: start: 20100101, end: 20100324

REACTIONS (4)
  - DYSPHONIA [None]
  - DYSPNOEA [None]
  - HYPOPHAGIA [None]
  - RASH GENERALISED [None]
